FAERS Safety Report 15378083 (Version 1)
Quarter: 2018Q3

REPORT INFORMATION
  Report Type: Spontaneous
  Country: US (occurrence: US)
  Receive Date: 20180906
  Receipt Date: 20180906
  Transmission Date: 20181010
  Serious: Yes (Hospitalization)
  Sender: FDA-Public Use
  Company Number: None

PATIENT
  Age: 47 Year
  Sex: Female

DRUGS (2)
  1. OCTREOTIDE. [Suspect]
     Active Substance: OCTREOTIDE
     Indication: MULTIPLE SCLEROSIS
     Route: 058
     Dates: start: 20180501
  2. OCTREOTIDE. [Suspect]
     Active Substance: OCTREOTIDE
     Indication: OESOPHAGITIS
     Route: 058
     Dates: start: 20180501

REACTIONS (2)
  - Alopecia [None]
  - Condition aggravated [None]

NARRATIVE: CASE EVENT DATE: 20180904
